FAERS Safety Report 10151903 (Version 6)
Quarter: 2015Q4

REPORT INFORMATION
  Report Type: Report from Study
  Country: JP (occurrence: JP)
  Receive Date: 20140505
  Receipt Date: 20151214
  Transmission Date: 20160304
  Serious: Yes (Hospitalization, Other)
  Sender: FDA-Public Use
  Company Number: JP-JNJFOC-20140308635

PATIENT
  Age: 46 Year
  Sex: Male

DRUGS (40)
  1. PREZISTA [Suspect]
     Active Substance: DARUNAVIR ETHANOLATE
     Indication: HIV INFECTION
     Route: 048
     Dates: start: 20091118, end: 20091127
  2. NORVIR [Suspect]
     Active Substance: RITONAVIR
     Indication: HIV INFECTION
     Route: 048
     Dates: start: 20121227, end: 20130417
  3. VALTREX [Concomitant]
     Active Substance: VALACYCLOVIR HYDROCHLORIDE
     Indication: GENITAL HERPES
     Route: 048
     Dates: start: 20141010, end: 20141016
  4. SAWACILLIN [Concomitant]
     Active Substance: AMOXICILLIN
     Indication: SYPHILIS
     Dosage: PERORAL MEDICINE
     Route: 048
     Dates: start: 20150319
  5. NORVIR [Suspect]
     Active Substance: RITONAVIR
     Indication: HIV INFECTION
     Route: 048
     Dates: start: 20110527, end: 20121130
  6. MYCOBUTIN [Concomitant]
     Active Substance: RIFABUTIN
     Indication: TUBERCULOSIS
     Route: 048
     Dates: start: 20091107, end: 20091120
  7. CRESTOR [Concomitant]
     Active Substance: ROSUVASTATIN CALCIUM
     Indication: DYSLIPIDAEMIA
     Dosage: 0.5 TO 2 MG
     Route: 048
     Dates: start: 20120412
  8. NEXIUM [Concomitant]
     Active Substance: ESOMEPRAZOLE MAGNESIUM
     Indication: PROPHYLAXIS
     Dosage: 0.5 TO 2 MG
     Route: 048
     Dates: start: 20130419
  9. VALTREX [Concomitant]
     Active Substance: VALACYCLOVIR HYDROCHLORIDE
     Indication: HERPES ZOSTER
     Route: 048
     Dates: start: 20141010, end: 20141016
  10. HARNAL [Concomitant]
     Active Substance: TAMSULOSIN HYDROCHLORIDE
     Indication: URETHRAL STENOSIS
     Route: 048
     Dates: start: 20100610, end: 20100708
  11. BAYASPIRIN [Concomitant]
     Active Substance: ASPIRIN
     Indication: PROPHYLAXIS
     Dosage: 0.5 TO 2 MG
     Route: 048
     Dates: start: 20130418
  12. JANUVIA [Concomitant]
     Active Substance: SITAGLIPTIN PHOSPHATE
     Indication: PROPHYLAXIS
     Dosage: PERORAL MEDICINE.
     Route: 048
     Dates: start: 20130612
  13. NORVIR [Suspect]
     Active Substance: RITONAVIR
     Indication: HIV INFECTION
     Route: 048
     Dates: start: 20091118, end: 20110526
  14. MYCOBUTIN [Concomitant]
     Active Substance: RIFABUTIN
     Indication: TUBERCULOSIS
     Route: 048
     Dates: start: 20091121, end: 20100916
  15. VALTREX [Concomitant]
     Active Substance: VALACYCLOVIR HYDROCHLORIDE
     Indication: GENITAL HERPES
     Route: 048
     Dates: start: 20091123, end: 20091130
  16. VESICARE [Concomitant]
     Active Substance: SOLIFENACIN SUCCINATE
     Indication: URETHRAL STENOSIS
     Route: 048
     Dates: start: 20101111, end: 20110316
  17. LOPEMIN [Concomitant]
     Active Substance: LOPERAMIDE HYDROCHLORIDE
     Indication: DIARRHOEA
     Route: 048
     Dates: start: 20110901, end: 20120401
  18. PLAVIX [Concomitant]
     Active Substance: CLOPIDOGREL BISULFATE
     Indication: PROPHYLAXIS
     Dosage: 0.5 TO 2 MG
     Route: 048
     Dates: start: 20130418
  19. PREZISTA [Suspect]
     Active Substance: DARUNAVIR ETHANOLATE
     Indication: HIV INFECTION
     Route: 048
     Dates: start: 20091128, end: 20121130
  20. RILPIVIRINE [Suspect]
     Active Substance: RILPIVIRINE
     Indication: HIV INFECTION
     Route: 048
     Dates: start: 20121201, end: 20121226
  21. TRUVADA [Concomitant]
     Active Substance: EMTRICITABINE\TENOFOVIR DISOPROXIL FUMARATE
     Indication: HIV INFECTION
     Dosage: 1 DF
     Route: 048
     Dates: start: 20091118
  22. PYDOXAL [Concomitant]
     Active Substance: PYRIDOXAL
     Indication: PROPHYLAXIS
     Route: 065
     Dates: start: 20091006, end: 20100916
  23. LOPEMIN [Concomitant]
     Active Substance: LOPERAMIDE HYDROCHLORIDE
     Indication: DIARRHOEA
     Route: 048
     Dates: start: 20110526, end: 20110831
  24. CHAMPIX [Concomitant]
     Active Substance: VARENICLINE TARTRATE
     Indication: EX-TOBACCO USER
     Dosage: 0.5 TO 2 MG
     Route: 048
     Dates: start: 20111013, end: 20111215
  25. FLAGYL [Concomitant]
     Active Substance: METRONIDAZOLE\METRONIDAZOLE HYDROCHLORIDE
     Indication: AMOEBIASIS
     Route: 065
     Dates: start: 20141017, end: 20141026
  26. BENECID [Concomitant]
     Active Substance: PROBENECID
     Indication: SYPHILIS
     Dosage: PERORAL MEDICINE
     Route: 048
     Dates: start: 20150319
  27. PREZISTA [Suspect]
     Active Substance: DARUNAVIR ETHANOLATE
     Indication: HIV INFECTION
     Route: 048
     Dates: start: 20121227, end: 20130417
  28. ISCOTIN [Concomitant]
     Active Substance: ISONIAZID
     Indication: PULMONARY TUBERCULOSIS
     Route: 065
     Dates: start: 20091006, end: 20100916
  29. RIFAMPICIN [Concomitant]
     Active Substance: RIFAMPIN
     Indication: PULMONARY TUBERCULOSIS
     Route: 048
     Dates: start: 20091006, end: 20091106
  30. EBUTOL [Concomitant]
     Active Substance: ETHAMBUTOL HYDROCHLORIDE
     Indication: PULMONARY TUBERCULOSIS
     Route: 048
     Dates: start: 20091006, end: 20100916
  31. PYRAMIDE [Concomitant]
     Active Substance: PYRAZINAMIDE
     Indication: PULMONARY TUBERCULOSIS
     Route: 048
     Dates: start: 20091006, end: 20091207
  32. ALOSITOL [Concomitant]
     Active Substance: ALLOPURINOL
     Indication: HYPERURICAEMIA
     Dosage: 0.5 TO 2 MG
     Route: 048
     Dates: start: 20120401, end: 20130418
  33. ATARAX-P [Concomitant]
     Active Substance: HYDROXYZINE HYDROCHLORIDE
     Indication: RASH
     Dosage: 0.5 TO 2 MG
     Route: 065
     Dates: start: 20121213, end: 20121226
  34. ISENTRESS [Concomitant]
     Active Substance: RALTEGRAVIR POTASSIUM
     Indication: HIV INFECTION
     Dosage: 0.5 TO 2 MG
     Route: 048
     Dates: start: 20130418, end: 20140625
  35. COVERSYL [Concomitant]
     Active Substance: PERINDOPRIL
     Indication: CARDIOPLEGIA
     Dosage: 0.5 TO 2 MG
     Route: 048
     Dates: start: 20130418
  36. FEBURIC [Concomitant]
     Active Substance: FEBUXOSTAT
     Indication: PROPHYLAXIS
     Dosage: 0.5 TO 2 MG
     Route: 048
     Dates: start: 20130419
  37. TIVICAY [Concomitant]
     Active Substance: DOLUTEGRAVIR SODIUM
     Indication: HIV INFECTION
     Route: 048
     Dates: start: 20140626
  38. VALTREX [Concomitant]
     Active Substance: VALACYCLOVIR HYDROCHLORIDE
     Indication: HERPES ZOSTER
     Route: 048
     Dates: start: 20091123, end: 20091130
  39. ARTIST [Concomitant]
     Active Substance: CARVEDILOL
     Indication: CARDIOPLEGIA
     Dosage: 0.5 TO 2 MG
     Route: 048
     Dates: start: 20130418
  40. ZOVIRAX [Concomitant]
     Active Substance: ACYCLOVIR
     Indication: GENITAL HERPES
     Dosage: ^Q.S. 1-2 TIMES PER DAY^.
     Route: 061
     Dates: start: 20140918, end: 20141204

REACTIONS (11)
  - Myocardial infarction [Recovering/Resolving]
  - Diabetes mellitus inadequate control [Recovering/Resolving]
  - Diarrhoea [Recovering/Resolving]
  - Weight increased [Recovering/Resolving]
  - Liver disorder [Recovering/Resolving]
  - Herpes zoster [Recovering/Resolving]
  - Urethral stenosis [Recovering/Resolving]
  - Lipids abnormal [Recovering/Resolving]
  - Drug prescribing error [Unknown]
  - Hepatic function abnormal [Recovered/Resolved]
  - Rash [Recovered/Resolved]

NARRATIVE: CASE EVENT DATE: 20091123
